FAERS Safety Report 6738423-8 (Version None)
Quarter: 2010Q2

REPORT INFORMATION
  Report Type: 
  Country: None (occurrence: None)
  Receive Date: 20100520
  Receipt Date: 20100519
  Transmission Date: 20101027
  Serious: Yes (Life-Threatening, Hospitalization, Other)
  Sender: FDA-Public Use
  Company Number: SP02847

PATIENT
  Age: 76 Year
  Sex: Female

DRUGS (6)
  1. VISICOL [Suspect]
     Indication: BOWEL PREPARATION
     Dosage: (50 GM), ORAL
     Route: 048
     Dates: start: 20100215, end: 20100215
  2. NICORANDIL [Concomitant]
  3. AMLODIPINE [Concomitant]
  4. CANDESARTAN CILEXETIL [Concomitant]
  5. ROSUVASTATIN CALCIUM [Concomitant]
  6. BIFIDOBACTERIUM [Concomitant]

REACTIONS (16)
  - ABDOMINAL DISTENSION [None]
  - APPARENT LIFE THREATENING EVENT [None]
  - APTYALISM [None]
  - BLOOD PHOSPHORUS INCREASED [None]
  - CATHETER CULTURE POSITIVE [None]
  - DECREASED APPETITE [None]
  - ENTEROCOCCAL SEPSIS [None]
  - FATIGUE [None]
  - GENERALISED OEDEMA [None]
  - HAEMODIALYSIS [None]
  - HYPOAESTHESIA [None]
  - NAUSEA [None]
  - OEDEMA [None]
  - PYELONEPHRITIS [None]
  - RENAL FAILURE ACUTE [None]
  - VOMITING [None]
